FAERS Safety Report 12262870 (Version 1)
Quarter: 2016Q2

REPORT INFORMATION
  Report Type: Spontaneous
  Country: BR (occurrence: BR)
  Receive Date: 20160413
  Receipt Date: 20160413
  Transmission Date: 20160815
  Serious: Yes (Hospitalization, Other)
  Sender: FDA-Public Use
  Company Number: BR-PFIZER INC-2016202285

PATIENT
  Age: 75 Year
  Sex: Male
  Weight: 50 kg

DRUGS (4)
  1. XALATAN [Suspect]
     Active Substance: LATANOPROST
     Indication: GLAUCOMA
     Dosage: ONE DROP IN BOTH EYES, 2X/DAY
     Route: 047
     Dates: start: 2011
  2. CLONAZEPAM. [Concomitant]
     Active Substance: CLONAZEPAM
     Indication: SLEEP DISORDER
     Dosage: 1 DF, 1X/DAY AT NIGHT
     Route: 048
     Dates: start: 2011
  3. PURAN [Concomitant]
     Active Substance: LEVOTHYROXINE SODIUM
     Indication: THYROID DISORDER
     Dosage: 1 DF, DAILY
     Route: 048
     Dates: start: 1975
  4. INSUMAN NPH [Concomitant]
     Indication: DIABETES MELLITUS
     Dosage: 2 APPLICATIONS DAILY
     Route: 048
     Dates: start: 2011

REACTIONS (7)
  - Hypertension [Unknown]
  - Arrhythmia [Unknown]
  - Seizure [Unknown]
  - Dementia Alzheimer^s type [Unknown]
  - Prostatic disorder [Unknown]
  - Bladder disorder [Not Recovered/Not Resolved]
  - Product use issue [Not Recovered/Not Resolved]

NARRATIVE: CASE EVENT DATE: 2011
